FAERS Safety Report 9113581 (Version 1)
Quarter: 2013Q1

REPORT INFORMATION
  Report Type: Spontaneous
  Country: US (occurrence: US)
  Receive Date: 20130208
  Receipt Date: 20130208
  Transmission Date: 20140127
  Serious: No
  Sender: FDA-Public Use
  Company Number: US-ASTRAZENECA-2013SE07893

PATIENT
  Age: 56 Year
  Sex: Female
  Weight: 59 kg

DRUGS (5)
  1. NEXIUM [Suspect]
     Indication: GASTROOESOPHAGEAL REFLUX DISEASE
     Route: 048
     Dates: start: 2004
  2. PANTOPRAZOLE [Concomitant]
     Indication: GASTROOESOPHAGEAL REFLUX DISEASE
  3. BABY ASPIRIN [Concomitant]
     Indication: CARDIAC DISORDER
  4. LOSARTAN [Concomitant]
     Indication: BLOOD PRESSURE
  5. VITORIN [Concomitant]
     Indication: BLOOD CHOLESTEROL

REACTIONS (4)
  - Body height decreased [Unknown]
  - Back disorder [Unknown]
  - Back injury [Not Recovered/Not Resolved]
  - Intentional drug misuse [Unknown]
